FAERS Safety Report 9407664 (Version 1)
Quarter: 2013Q3

REPORT INFORMATION
  Report Type: Spontaneous
  Country: US (occurrence: None)
  Receive Date: 20130717
  Receipt Date: 20130717
  Transmission Date: 20140515
  Serious: Yes (Other)
  Sender: FDA-Public Use
  Company Number: None

PATIENT
  Age: 59 Year
  Sex: Female
  Weight: 92.99 kg

DRUGS (2)
  1. BOTOX [Suspect]
     Indication: BLADDER SPASM
     Dosage: 100 UNITS 1 TREATMENT INJECTED INTO THE BLADDER WALL + MUSCLE
     Dates: start: 20130607
  2. BOTOX [Suspect]
     Indication: HYPERTONIC BLADDER
     Dosage: 100 UNITS 1 TREATMENT INJECTED INTO THE BLADDER WALL + MUSCLE
     Dates: start: 20130607

REACTIONS (4)
  - Muscular weakness [None]
  - Headache [None]
  - Nausea [None]
  - Malaise [None]
